FAERS Safety Report 4886788-4 (Version None)
Quarter: 2006Q1

REPORT INFORMATION
  Report Type: 
  Country: None (occurrence: None)
  Receive Date: 20060119
  Receipt Date: 20060106
  Transmission Date: 20060701
  Serious: Yes (Other)
  Sender: FDA-Public Use
  Company Number: 2005007955

PATIENT
  Age: 15 Year
  Sex: Female

DRUGS (4)
  1. ZIPRASIDONE HCL [Suspect]
     Indication: ILL-DEFINED DISORDER
     Dosage: 40 MG, UNKNOWN
  2. ACETAMINOPHEN [Suspect]
     Indication: ILL-DEFINED DISORDER
  3. CITALOPRAM (CITALOPRAM) [Suspect]
     Indication: ILL-DEFINED DISORDER
     Dosage: 20 MG, UNKNOWN
  4. ALCOHOL (ETHANOL) [Suspect]
     Indication: ILL-DEFINED DISORDER

REACTIONS (1)
  - SUICIDE ATTEMPT [None]
